FAERS Safety Report 23745520 (Version 2)
Quarter: 2024Q2

REPORT INFORMATION
  Report Type: Spontaneous
  Country: US (occurrence: US)
  Receive Date: 20240416
  Receipt Date: 20240417
  Transmission Date: 20240715
  Serious: Yes (Other)
  Sender: FDA-Public Use
  Company Number: US-ABBVIE-5715525

PATIENT
  Age: 26 Year
  Sex: Female
  Weight: 131.54 kg

DRUGS (2)
  1. HUMIRA [Suspect]
     Active Substance: ADALIMUMAB
     Indication: Hidradenitis
     Dosage: STRENGTH: 80 MG
     Route: 058
     Dates: start: 202402
  2. HUMIRA [Suspect]
     Active Substance: ADALIMUMAB
     Dosage: STRENGTH: 80 MG
     Route: 058
     Dates: start: 202301, end: 202402

REACTIONS (6)
  - Cholelithiasis [Recovered/Resolved]
  - Malaise [Not Recovered/Not Resolved]
  - Abdominal pain upper [Not Recovered/Not Resolved]
  - Scar [Not Recovered/Not Resolved]
  - Cholecystitis [Recovered/Resolved]
  - COVID-19 [Recovered/Resolved]

NARRATIVE: CASE EVENT DATE: 20230501
